FAERS Safety Report 18576528 (Version 1)
Quarter: 2020Q4

REPORT INFORMATION
  Report Type: Spontaneous
  Country: CH (occurrence: CH)
  Receive Date: 20201203
  Receipt Date: 20201203
  Transmission Date: 20210114
  Serious: Yes (Hospitalization)
  Sender: FDA-Public Use
  Company Number: CH-BAYER-2020-257393

PATIENT
  Age: 57 Year
  Sex: Female

DRUGS (8)
  1. STIVARGA [Suspect]
     Active Substance: REGORAFENIB
     Indication: ADENOCARCINOMA OF COLON
     Dosage: 80 MG, QD 1X/DAY 3 WEEKS/4
     Route: 048
     Dates: start: 20200929, end: 20201019
  2. DALMADORM [Concomitant]
     Active Substance: FLURAZEPAM HYDROCHLORIDE
  3. WELLBUTRIN [Concomitant]
     Active Substance: BUPROPION HYDROCHLORIDE
  4. TRITTICO [Concomitant]
     Active Substance: TRAZODONE HYDROCHLORIDE
  5. NIVOLUMAB [Suspect]
     Active Substance: NIVOLUMAB
     Indication: ADENOCARCINOMA OF COLON
     Dosage: 240 MG, UNK
     Dates: start: 20200929, end: 20200929
  6. PREGABALIN. [Concomitant]
     Active Substance: PREGABALIN
  7. ENOXAPARINE SODIQUE [Concomitant]
     Active Substance: ENOXAPARIN SODIUM
     Dates: start: 20201017, end: 20201023
  8. NIVOLUMAB [Suspect]
     Active Substance: NIVOLUMAB
     Indication: ADENOCARCINOMA OF COLON
     Dosage: 240 MG, UNK
     Dates: start: 20201013, end: 20201013

REACTIONS (5)
  - COVID-19 [None]
  - Campylobacter infection [None]
  - Pulmonary embolism [None]
  - Mixed liver injury [Not Recovered/Not Resolved]
  - Cholestatic liver injury [Not Recovered/Not Resolved]

NARRATIVE: CASE EVENT DATE: 20201004
